FAERS Safety Report 4750447-9 (Version None)
Quarter: 2005Q3

REPORT INFORMATION
  Report Type: 
  Country: None (occurrence: None)
  Receive Date: 20050823
  Receipt Date: 20050818
  Transmission Date: 20060218
  Serious: Yes (Other)
  Sender: FDA-Public Use
  Company Number: GB-GLAXOSMITHKLINE-B0391322A

PATIENT
  Sex: Female

DRUGS (1)
  1. PIRITON [Suspect]
     Route: 048

REACTIONS (1)
  - LOCKED-IN SYNDROME [None]
